FAERS Safety Report 11787229 (Version 1)
Quarter: 2015Q4

REPORT INFORMATION
  Report Type: Spontaneous
  Country: BE (occurrence: BE)
  Receive Date: 20151130
  Receipt Date: 20151130
  Transmission Date: 20160305
  Serious: Yes (Other)
  Sender: FDA-Public Use
  Company Number: BE-WATSON-2015-15908

PATIENT
  Age: 48 Year
  Sex: Male

DRUGS (2)
  1. CYPROTERONE ACETATE [Concomitant]
     Active Substance: CYPROTERONE ACETATE
     Indication: ANTIANDROGEN THERAPY
     Dosage: 50 MG, DAILY
     Route: 065
  2. TRELSTAR [Suspect]
     Active Substance: TRIPTORELIN PAMOATE
     Indication: PARAPHILIA
     Dosage: UNK
     Route: 065

REACTIONS (5)
  - Nausea [Recovering/Resolving]
  - Unmasking of previously unidentified disease [Recovering/Resolving]
  - Vomiting [Recovering/Resolving]
  - Headache [Recovering/Resolving]
  - Diplopia [Recovering/Resolving]
